FAERS Safety Report 7771562-1 (Version None)
Quarter: 2011Q3

REPORT INFORMATION
  Report Type: 
  Country: None (occurrence: None)
  Receive Date: 20110922
  Receipt Date: 20100115
  Transmission Date: 20111222
  Serious: No
  Sender: FDA-Public Use
  Company Number: US-ASTRAZENECA-2009SE15676

PATIENT
  Age: 661 Month
  Sex: Female
  Weight: 99.8 kg

DRUGS (13)
  1. WELLBUTRIN SR [Concomitant]
     Dosage: 150 ONE BID
     Dates: start: 20030728
  2. TRILEPTAL [Concomitant]
     Dosage: 300 ONE BID
     Dates: start: 20030728
  3. SEROQUEL [Suspect]
     Indication: SLEEP DISORDER
     Route: 048
     Dates: start: 20030101, end: 20070101
  4. NEURONTIN [Concomitant]
     Dosage: 300 ONE TID
     Dates: start: 20031129
  5. TOPAMAX [Concomitant]
     Dosage: 100-300 MG
     Route: 048
     Dates: start: 20040315
  6. ZOLOFT [Concomitant]
     Dosage: 50 ONE QAM
     Dates: start: 20040503
  7. VALIUM [Concomitant]
     Route: 048
     Dates: start: 20040901
  8. PROZAC [Concomitant]
     Dosage: 20 ONE QAM
     Dates: start: 20040701
  9. SEROQUEL [Suspect]
     Dosage: 100-400 MG
     Route: 048
     Dates: start: 20030728
  10. REMERON [Concomitant]
     Dosage: 15 ONE QHS
     Dates: start: 20040701
  11. LEXAPRO [Concomitant]
     Dates: start: 20030825, end: 20031129
  12. CLOZAPINE [Concomitant]
     Dosage: 2 AT NIGHT
     Dates: start: 20050101, end: 20070101
  13. KLONOPIN [Concomitant]
     Route: 048
     Dates: start: 20040816

REACTIONS (2)
  - OBESITY [None]
  - TYPE 2 DIABETES MELLITUS [None]
